FAERS Safety Report 5105672-4 (Version None)
Quarter: 2006Q3

REPORT INFORMATION
  Report Type: 
  Country: None (occurrence: None)
  Receive Date: 20060915
  Receipt Date: 20060628
  Transmission Date: 20061208
  Serious: Yes (Death)
  Sender: FDA-Public Use
  Company Number: 2006AP02963

PATIENT
  Age: 17300 Day
  Sex: Male
  Weight: 78 kg

DRUGS (18)
  1. IRESSA [Suspect]
     Indication: NON-SMALL CELL LUNG CANCER STAGE IIIA
     Route: 048
     Dates: start: 20060225, end: 20060511
  2. IRESSA [Suspect]
     Indication: ADENOSQUAMOUS CELL LUNG CANCER
     Route: 048
     Dates: start: 20060225, end: 20060511
  3. PREDONINE [Suspect]
     Indication: METASTASES TO CENTRAL NERVOUS SYSTEM
     Route: 048
     Dates: start: 20050822, end: 20060519
  4. PREDONINE [Suspect]
     Route: 048
     Dates: start: 20060520
  5. PREDONINE [Suspect]
     Route: 048
  6. CISPLATIN [Concomitant]
     Dosage: 2 CYCLES
     Dates: start: 20050105, end: 20050131
  7. CISPLATIN [Concomitant]
     Dosage: 2 CYCLES
     Dates: start: 20050414, end: 20050512
  8. DOCETAXEL [Concomitant]
     Dosage: 2 CYCLES
     Dates: start: 20050105, end: 20050131
  9. DOCETAXEL [Concomitant]
     Dosage: 2 CYCLES
     Dates: start: 20050414, end: 20050512
  10. RADIOTHERAPY [Concomitant]
     Dosage: 70 GY TO MEDIASTINUM
     Dates: start: 20050602, end: 20050725
  11. OXYCONTIN [Concomitant]
     Indication: CANCER PAIN
     Route: 048
     Dates: start: 20060331
  12. DEPAKENE [Concomitant]
     Indication: CONVULSION PROPHYLAXIS
     Route: 048
     Dates: start: 20060403
  13. TEGRETOL [Concomitant]
     Route: 048
  14. DEPAS [Concomitant]
     Route: 048
  15. EPENARD [Concomitant]
     Route: 048
  16. AZUCURENIN [Concomitant]
     Route: 048
  17. LOXONIN [Concomitant]
     Indication: CANCER PAIN
     Route: 048
  18. MYONAL [Concomitant]
     Route: 048

REACTIONS (8)
  - BRONCHOSTENOSIS [None]
  - CANCER PAIN [None]
  - INSOMNIA [None]
  - INTERSTITIAL LUNG DISEASE [None]
  - LYMPHANGIOSIS CARCINOMATOSA [None]
  - METASTASES TO LUNG [None]
  - METASTASES TO LYMPH NODES [None]
  - PNEUMOCYSTIS JIROVECI PNEUMONIA [None]
